FAERS Safety Report 4784428-6 (Version None)
Quarter: 2005Q3

REPORT INFORMATION
  Report Type: 
  Country: None (occurrence: None)
  Receive Date: 20050928
  Receipt Date: 20050916
  Transmission Date: 20060218
  Serious: Yes (Hospitalization)
  Sender: FDA-Public Use
  Company Number: US-2005-018880

PATIENT
  Age: 53 Year
  Sex: Female

DRUGS (9)
  1. LEUKINE 250 MCG (SARGRAMOSTIM) INJECTION [Suspect]
     Indication: METASTATIC MALIGNANT MELANOMA
     Dosage: 250 UG/M2, 1X/DAY ON D6-D19, SUBCUTANEOUS
     Route: 058
     Dates: start: 20050719, end: 20050728
  2. LEUKINE 250 MCG (SARGRAMOSTIM) INJECTION [Suspect]
     Indication: METASTATIC MALIGNANT MELANOMA
     Dosage: 250 UG/M2, 1X/DAY ON D6-D19, SUBCUTANEOUS
     Route: 058
     Dates: start: 20050816, end: 20050829
  3. THALIDOMIDE (THALIDOMIDE) [Suspect]
     Indication: METASTATIC MALIGNANT MELANOMA
     Dosage: SEE IMAGE, ORAL
     Route: 048
     Dates: start: 20050714, end: 20050720
  4. THALIDOMIDE (THALIDOMIDE) [Suspect]
     Indication: METASTATIC MALIGNANT MELANOMA
     Dosage: SEE IMAGE, ORAL
     Route: 048
     Dates: start: 20050721, end: 20050728
  5. THALIDOMIDE (THALIDOMIDE) [Suspect]
     Indication: METASTATIC MALIGNANT MELANOMA
     Dosage: SEE IMAGE, ORAL
     Route: 048
     Dates: start: 20050804, end: 20050829
  6. TEMOZOLOMIDE(TEMOZOLOMIDE) [Suspect]
     Indication: METASTATIC MALIGNANT MELANOMA
     Dosage: 150 MG/M2, 1X/DAY D1-5,  ORAL
     Route: 048
     Dates: start: 20050714, end: 20050718
  7. TEMOZOLOMIDE(TEMOZOLOMIDE) [Suspect]
     Indication: METASTATIC MALIGNANT MELANOMA
     Dosage: 150 MG/M2, 1X/DAY D1-5,  ORAL
     Route: 048
     Dates: start: 20050811, end: 20050815
  8. COUMADIN [Concomitant]
  9. LOVENOX [Concomitant]

REACTIONS (14)
  - AGGRESSION [None]
  - APHASIA [None]
  - CONFUSIONAL STATE [None]
  - DEEP VEIN THROMBOSIS [None]
  - DISORIENTATION [None]
  - DYSARTHRIA [None]
  - EOSINOPHILIA [None]
  - HYPERSENSITIVITY [None]
  - INTERNATIONAL NORMALISED RATIO DECREASED [None]
  - MENINGITIS [None]
  - MENTAL STATUS CHANGES [None]
  - METASTASES TO LUNG [None]
  - TRANSIENT ISCHAEMIC ATTACK [None]
  - WHITE BLOOD CELL COUNT INCREASED [None]
